FAERS Safety Report 9558805 (Version 1)
Quarter: 2013Q3

REPORT INFORMATION
  Report Type: Spontaneous
  Country: US (occurrence: US)
  Receive Date: 20130926
  Receipt Date: 20130926
  Transmission Date: 20140515
  Serious: Yes (Other)
  Sender: FDA-Public Use
  Company Number: US-ROCHE-1279222

PATIENT
  Age: 47 Year
  Sex: Female

DRUGS (2)
  1. VALIUM [Suspect]
     Indication: MUSCLE SPASMS
     Route: 065
  2. COPAXONE [Concomitant]
     Indication: MULTIPLE SCLEROSIS
     Route: 065
     Dates: start: 20130320

REACTIONS (8)
  - Multiple sclerosis relapse [Unknown]
  - Muscle spasms [Unknown]
  - Hypoaesthesia [Unknown]
  - Peroneal nerve palsy [Unknown]
  - Vomiting [Unknown]
  - Hepatic enzyme increased [Unknown]
  - White blood cell count decreased [Unknown]
  - Weight decreased [Unknown]
